APPROVED DRUG PRODUCT: LITHIUM CARBONATE
Active Ingredient: LITHIUM CARBONATE
Strength: 300MG
Dosage Form/Route: TABLET;ORAL
Application: A078715 | Product #001
Applicant: HIKMA INTERNATIONAL PHARMACEUTICALS LLC
Approved: Dec 28, 2010 | RLD: No | RS: No | Type: DISCN